FAERS Safety Report 8977031 (Version 1)
Quarter: 2012Q4

REPORT INFORMATION
  Report Type: 
  Country: US (occurrence: US)
  Receive Date: 20121220
  Receipt Date: 20121220
  Transmission Date: 20130627
  Serious: Yes (Other)
  Sender: FDA-Public Use
  Company Number: US-ACTELION-A-US2011-50560

PATIENT
  Age: 70 Year
  Sex: Female

DRUGS (6)
  1. TRACLEER [Suspect]
     Indication: PULMONARY ARTERIAL HYPERTENSION
     Dosage: 125 mg, bid
     Route: 048
     Dates: start: 2003
  2. COUMADIN [Concomitant]
  3. LEXAPRO [Concomitant]
     Dosage: 10 mg, od
  4. METHOTREXATE BIGMAR [Concomitant]
     Dosage: 0.05 cc, weekly
  5. PREMARIN [Concomitant]
     Dosage: 0.3 mg, UNK
     Dates: start: 1998
  6. NEURONTIN [Concomitant]
     Dosage: 600 mg, tid

REACTIONS (18)
  - Sleep apnoea syndrome [Recovering/Resolving]
  - Cardiac failure congestive [Recovering/Resolving]
  - Presyncope [Unknown]
  - Dyspnoea [Unknown]
  - Oedema peripheral [Not Recovered/Not Resolved]
  - Weight decreased [Not Recovered/Not Resolved]
  - Nasal dryness [Unknown]
  - Insomnia [Unknown]
  - Muscle spasms [Recovering/Resolving]
  - Headache [Unknown]
  - Fluid retention [Not Recovered/Not Resolved]
  - Blood count abnormal [Unknown]
  - Anaemia [Recovering/Resolving]
  - Haemoglobin decreased [Recovering/Resolving]
  - Osteoporosis [Not Recovered/Not Resolved]
  - Gastrooesophageal reflux disease [Unknown]
  - Cough [Unknown]
  - Rheumatoid arthritis [Unknown]
